FAERS Safety Report 6808780-2 (Version None)
Quarter: 2010Q2

REPORT INFORMATION
  Report Type: 
  Country: None (occurrence: None)
  Receive Date: 20100630
  Receipt Date: 20090921
  Transmission Date: 20101027
  Serious: Yes (Other)
  Sender: FDA-Public Use
  Company Number: US-PFIZER INC-2009250424

PATIENT
  Sex: Female

DRUGS (15)
  1. NITROSTAT [Suspect]
     Indication: CHEST PAIN
     Route: 060
  2. LIPITOR [Concomitant]
     Indication: BLOOD CHOLESTEROL INCREASED
     Dosage: FREQUENCY: 1X/DAY, EVERY DAY;
     Route: 048
  3. INDERAL [Concomitant]
  4. ZANTAC [Concomitant]
  5. METOLAZONE [Concomitant]
  6. GLUCOTROL [Concomitant]
  7. VITAMIN B [Concomitant]
  8. XANAX [Concomitant]
  9. COREG [Concomitant]
  10. LASIX [Concomitant]
  11. ACTOS [Concomitant]
  12. PLAVIX [Concomitant]
  13. AMIODARONE [Concomitant]
  14. SPIRONOLACTONE [Concomitant]
  15. ATROVENT [Concomitant]

REACTIONS (1)
  - DRUG INEFFECTIVE [None]
